FAERS Safety Report 19802610 (Version 1)
Quarter: 2021Q3

REPORT INFORMATION
  Report Type: Spontaneous
  Country: US (occurrence: US)
  Receive Date: 20210908
  Receipt Date: 20210908
  Transmission Date: 20211014
  Serious: Yes (Other)
  Sender: FDA-Public Use
  Company Number: US-LEADINGPHARMA-US-2021LEALIT00274

PATIENT
  Age: 87 Year
  Sex: Male

DRUGS (8)
  1. ATENOLOL. [Concomitant]
     Active Substance: ATENOLOL
     Indication: PRODUCT USED FOR UNKNOWN INDICATION
     Route: 065
  2. GENTAMICIN. [Interacting]
     Active Substance: GENTAMICIN
     Indication: SCROTAL ULCER
     Route: 061
  3. MUPIROCIN. [Interacting]
     Active Substance: MUPIROCIN
     Indication: SCROTAL ULCER
     Route: 065
  4. DOXYCYCLINE. [Interacting]
     Active Substance: DOXYCYCLINE
     Indication: SCROTAL ULCER
     Route: 048
  5. FLUOROURACIL. [Interacting]
     Active Substance: FLUOROURACIL
     Indication: SCROTAL ULCER
     Route: 065
  6. LISINOPRIL. [Concomitant]
     Active Substance: LISINOPRIL
     Indication: PRODUCT USED FOR UNKNOWN INDICATION
     Route: 065
  7. HYDROXYUREA. [Suspect]
     Active Substance: HYDROXYUREA
     Indication: PRODUCT USED FOR UNKNOWN INDICATION
     Route: 065
  8. ACETYLSALICYLIC ACID [Concomitant]
     Active Substance: ASPIRIN
     Indication: PRODUCT USED FOR UNKNOWN INDICATION
     Route: 065

REACTIONS (1)
  - Scrotal ulcer [Recovered/Resolved]
